FAERS Safety Report 18746325 (Version 1)
Quarter: 2021Q1

REPORT INFORMATION
  Report Type: Spontaneous
  Country: US (occurrence: US)
  Receive Date: 20210115
  Receipt Date: 20210115
  Transmission Date: 20210419
  Serious: Yes (Hospitalization)
  Sender: FDA-Public Use
  Company Number: US-AMNEAL PHARMACEUTICALS-2021-AMRX-00049

PATIENT
  Age: 21 Year
  Sex: Female

DRUGS (6)
  1. SUMATRIPTAN. [Suspect]
     Active Substance: SUMATRIPTAN
     Indication: SUICIDE ATTEMPT
     Dosage: 2 TABLETS
     Route: 065
  2. NAPROXEN. [Suspect]
     Active Substance: NAPROXEN
     Indication: SUICIDE ATTEMPT
     Dosage: 2 TABLETS
     Route: 065
  3. CARIPRAZINE [Suspect]
     Active Substance: CARIPRAZINE
     Indication: SUICIDE ATTEMPT
     Dosage: 20 TABLETS
     Route: 065
  4. MIRTAZAPINE ODT [Suspect]
     Active Substance: MIRTAZAPINE
     Indication: SUICIDE ATTEMPT
     Dosage: 7 TABLETS
     Route: 065
  5. PALIPERIDONE. [Suspect]
     Active Substance: PALIPERIDONE
     Indication: SUICIDE ATTEMPT
     Dosage: 7 TABLETS
     Route: 065
  6. TOPIRAMATE. [Suspect]
     Active Substance: TOPIRAMATE
     Indication: SUICIDE ATTEMPT
     Dosage: 7 TABLETS
     Route: 065

REACTIONS (3)
  - Sinus tachycardia [Recovered/Resolved]
  - Atrioventricular block first degree [Recovered/Resolved]
  - Intentional overdose [Unknown]
